FAERS Safety Report 14331926 (Version 1)
Quarter: 2017Q4

REPORT INFORMATION
  Report Type: Spontaneous
  Country: US (occurrence: US)
  Receive Date: 20171227
  Receipt Date: 20171227
  Transmission Date: 20180321
  Serious: Yes (Hospitalization)
  Sender: FDA-Public Use
  Company Number: None

PATIENT
  Sex: Female
  Weight: 67.5 kg

DRUGS (8)
  1. ATORVASTATIN [Concomitant]
     Active Substance: ATORVASTATIN
  2. TIMOLOL MALEATE. [Concomitant]
     Active Substance: TIMOLOL MALEATE
  3. LEVOTHYROXINE. [Concomitant]
     Active Substance: LEVOTHYROXINE
  4. PRILOSEC [Concomitant]
     Active Substance: OMEPRAZOLE MAGNESIUM
  5. CALCIUM [Concomitant]
     Active Substance: CALCIUM
  6. AZOPT [Concomitant]
     Active Substance: BRINZOLAMIDE
  7. LATANOPROST. [Concomitant]
     Active Substance: LATANOPROST
  8. VIGAMOX [Suspect]
     Active Substance: MOXIFLOXACIN HYDROCHLORIDE
     Indication: EYE INFECTION
     Dosage: ?          QUANTITY:1 DROP(S);OTHER FREQUENCY:EVERY HOUR;?
     Route: 047
     Dates: start: 20171218

REACTIONS (2)
  - Eye infection [None]
  - Epistaxis [None]

NARRATIVE: CASE EVENT DATE: 20171224
